FAERS Safety Report 5374581-8 (Version None)
Quarter: 2007Q2

REPORT INFORMATION
  Report Type: 
  Country: None (occurrence: None)
  Receive Date: 20070627
  Receipt Date: 20070627
  Transmission Date: 20071010
  Serious: No
  Sender: FDA-Public Use
  Company Number: None

PATIENT
  Age: 73 Year
  Sex: Male

DRUGS (1)
  1. TERAZOSIN HCL [Suspect]
     Indication: BENIGN PROSTATIC HYPERPLASIA
     Dosage: 5MG  HS  PO
     Route: 048
     Dates: start: 20041122, end: 20070201

REACTIONS (2)
  - DIZZINESS [None]
  - HYPOTENSION [None]
